FAERS Safety Report 19754632 (Version 2)
Quarter: 2021Q3

REPORT INFORMATION
  Report Type: Spontaneous
  Country: JP (occurrence: JP)
  Receive Date: 20210827
  Receipt Date: 20210914
  Transmission Date: 20211014
  Serious: Yes (Hospitalization, Other)
  Sender: FDA-Public Use
  Company Number: JP-ALKEM LABORATORIES LIMITED-JP-ALKEM-2021-05472

PATIENT
  Age: 73 Year
  Sex: Male
  Weight: 59.6 kg

DRUGS (9)
  1. HALOPERIDOL. [Suspect]
     Active Substance: HALOPERIDOL
     Indication: TOURETTE^S DISORDER
     Dosage: 1 MILLIGRAM, QD
     Route: 065
  2. ASENAPINE. [Suspect]
     Active Substance: ASENAPINE
     Indication: DEMENTIA ALZHEIMER^S TYPE
     Dosage: 5 MILLIGRAM, QD
     Route: 065
  3. GALANTAMINE. [Concomitant]
     Active Substance: GALANTAMINE
     Indication: COGNITIVE DISORDER
     Dosage: 8 MILLIGRAM, QD
     Route: 065
  4. MEMATINE [Concomitant]
     Active Substance: MEMANTINE
     Indication: COGNITIVE DISORDER
     Dosage: UNK
     Route: 065
  5. GALANTAMINE. [Concomitant]
     Active Substance: GALANTAMINE
     Indication: DEMENTIA ALZHEIMER^S TYPE
  6. MEMATINE [Concomitant]
     Active Substance: MEMANTINE
     Indication: DEMENTIA ALZHEIMER^S TYPE
  7. ASENAPINE. [Suspect]
     Active Substance: ASENAPINE
     Indication: COGNITIVE DISORDER
     Dosage: 10 MILLIGRAM, QD
     Route: 065
  8. CLONAZEPAM. [Suspect]
     Active Substance: CLONAZEPAM
     Indication: DEMENTIA
     Dosage: 0.5 MILLIGRAM, QD
     Route: 065
  9. QUETIAPINE FUMARATE. [Suspect]
     Active Substance: QUETIAPINE FUMARATE
     Indication: DEMENTIA
     Dosage: 25 MILLIGRAM, QD
     Route: 065

REACTIONS (4)
  - Off label use [Unknown]
  - Tourette^s disorder [Recovering/Resolving]
  - Condition aggravated [Recovering/Resolving]
  - Tardive dyskinesia [Recovering/Resolving]
